FAERS Safety Report 8000908 (Version 4)
Quarter: 2013Q1

REPORT INFORMATION
  Report Type: Spontaneous
  Country: US (occurrence: US)
  Receive Date: 20110621
  Receipt Date: 20130116
  Transmission Date: 20140127
  Serious: No
  Sender: FDA-Public Use
  Company Number: US-ASTRAZENECA-2011SE11667

PATIENT
  Age: 68 Year
  Sex: Male

DRUGS (2)
  1. PULMICORT FLEXHALER [Suspect]
     Indication: ASTHMA
     Dosage: 180 MCG, TWO PUFF TWO TIME A DAY
     Route: 055
     Dates: start: 2006
  2. NEXIUM [Suspect]
     Route: 048

REACTIONS (7)
  - Visual impairment [Unknown]
  - Dyspnoea [Unknown]
  - Asthma [Unknown]
  - Throat irritation [Unknown]
  - Malaise [Unknown]
  - Intentional drug misuse [Unknown]
  - Drug dose omission [Unknown]
